FAERS Safety Report 18503241 (Version 3)
Quarter: 2020Q4

REPORT INFORMATION
  Report Type: Report from Study
  Country: None (occurrence: CH)
  Receive Date: 20201114
  Receipt Date: 20201126
  Transmission Date: 20210114
  Serious: Yes (Death, Life-Threatening, Hospitalization)
  Sender: FDA-Public Use
  Company Number: CH-ABBVIE-20K-151-3646333-00

PATIENT
  Sex: Female

DRUGS (3)
  1. DUODOPA [Suspect]
     Active Substance: CARBIDOPA\LEVODOPA
     Dosage: MD 4.0ML, CRD 3.1ML/H, CRN 0ML/H, ED 3.0ML?16H THERAPY
     Route: 050
     Dates: start: 20200903, end: 20200908
  2. DUODOPA [Suspect]
     Active Substance: CARBIDOPA\LEVODOPA
     Dosage: MD 4.0ML, CRD 3.1ML/H, CRN 1ML/H, ED 3.0ML?24H THERAPY
     Route: 050
     Dates: start: 20200908
  3. DUODOPA [Suspect]
     Active Substance: CARBIDOPA\LEVODOPA
     Indication: PARKINSON^S DISEASE
     Dosage: 16H THERAPY?1 CASETTE A DAY
     Route: 050
     Dates: start: 20200720, end: 20200903

REACTIONS (4)
  - General physical health deterioration [Fatal]
  - Lung disorder [Unknown]
  - Oxygen saturation decreased [Unknown]
  - COVID-19 [Fatal]

NARRATIVE: CASE EVENT DATE: 2020
